FAERS Safety Report 9580070 (Version 1)
Quarter: 2013Q3

REPORT INFORMATION
  Report Type: Spontaneous
  Country: US (occurrence: None)
  Receive Date: 20130930
  Receipt Date: 20130930
  Transmission Date: 20140515
  Serious: No
  Sender: FDA-Public Use
  Company Number: None

PATIENT
  Age: 50 Year
  Sex: Male
  Weight: 96.16 kg

DRUGS (2)
  1. CIPRO [Suspect]
     Indication: KIDNEY INFECTION
     Dosage: LEVAQUIN
  2. CIPRO [Suspect]
     Indication: CYSTITIS
     Dosage: LEVAQUIN

REACTIONS (9)
  - Feeling abnormal [None]
  - Performance status decreased [None]
  - Depression [None]
  - Diarrhoea [None]
  - Visual impairment [None]
  - Tendon pain [None]
  - Muscle injury [None]
  - Asthenia [None]
  - Blood glucose increased [None]
